FAERS Safety Report 7286829-3 (Version None)
Quarter: 2011Q1

REPORT INFORMATION
  Report Type: 
  Country: None (occurrence: None)
  Receive Date: 20110210
  Receipt Date: 20110128
  Transmission Date: 20110831
  Serious: Yes (Hospitalization)
  Sender: FDA-Public Use
  Company Number: FR-MYLANLABS-2011S1002200

PATIENT
  Age: 46 Year
  Sex: Female

DRUGS (2)
  1. CYPROTERONE [Suspect]
     Indication: ANDROGENETIC ALOPECIA
     Route: 048
  2. ESTRADIOL [Suspect]
     Indication: ANDROGENETIC ALOPECIA

REACTIONS (2)
  - ISCHAEMIC STROKE [None]
  - MENINGIOMA [None]
